FAERS Safety Report 13289664 (Version 2)
Quarter: 2017Q2

REPORT INFORMATION
  Report Type: Spontaneous
  Country: FR (occurrence: FR)
  Receive Date: 20170302
  Receipt Date: 20170412
  Transmission Date: 20170830
  Serious: Yes (Hospitalization)
  Sender: FDA-Public Use
  Company Number: PHHY2017FR030946

PATIENT
  Age: 2 Year
  Sex: Female
  Weight: 13.8 kg

DRUGS (4)
  1. VINCRISTINE HOSPIRA [Suspect]
     Active Substance: VINCRISTINE
     Indication: RENAL NEOPLASM
     Dosage: 0.85 MG, UNK
     Route: 042
     Dates: start: 20170130, end: 20170130
  2. IMPORTAL [Suspect]
     Active Substance: LACTITOL
     Indication: PRODUCT USED FOR UNKNOWN INDICATION
     Dosage: 5 G, QD
     Route: 048
     Dates: start: 20170130, end: 20170206
  3. COSMEGEN [Suspect]
     Active Substance: DACTINOMYCIN
     Indication: RENAL NEOPLASM
     Dosage: 620 UG, UNK
     Route: 042
     Dates: start: 20170130
  4. ZOPHREN [Suspect]
     Active Substance: ONDANSETRON
     Indication: PROPHYLAXIS OF NAUSEA AND VOMITING
     Dosage: 4 MG, BID
     Route: 048
     Dates: start: 20170130, end: 20170211

REACTIONS (5)
  - Ileus paralytic [Recovered/Resolved]
  - Pain in extremity [Recovered/Resolved]
  - Anuria [Recovered/Resolved]
  - Pain in jaw [Recovered/Resolved]
  - Rash maculo-papular [Recovered/Resolved]

NARRATIVE: CASE EVENT DATE: 20170206
